FAERS Safety Report 12278737 (Version 1)
Quarter: 2016Q2

REPORT INFORMATION
  Report Type: Spontaneous
  Country: US (occurrence: US)
  Receive Date: 20160418
  Receipt Date: 20160418
  Transmission Date: 20160815
  Serious: Yes (Other)
  Sender: FDA-Public Use
  Company Number: US-ASTRAZENECA-2016SE39338

PATIENT
  Age: 54 Year
  Sex: Female
  Weight: 79.4 kg

DRUGS (18)
  1. NEXIUM [Suspect]
     Active Substance: ESOMEPRAZOLE MAGNESIUM
     Indication: GASTROOESOPHAGEAL REFLUX DISEASE
     Route: 048
     Dates: start: 2007, end: 2010
  2. METOPROLOL SUCCINATE. [Suspect]
     Active Substance: METOPROLOL SUCCINATE
     Indication: HEART RATE IRREGULAR
     Route: 048
     Dates: start: 2013
  3. VITAMIN E [Concomitant]
     Active Substance: .ALPHA.-TOCOPHEROL
     Route: 065
  4. METOPROLOL SUCCINATE. [Suspect]
     Active Substance: METOPROLOL SUCCINATE
     Indication: HEART RATE IRREGULAR
     Route: 048
     Dates: start: 2015
  5. VITAMIN B12 [Concomitant]
     Active Substance: CYANOCOBALAMIN
     Indication: ASTHENIA
     Route: 065
     Dates: start: 2013
  6. VITAMIN C [Concomitant]
     Active Substance: ASCORBIC ACID
     Route: 065
  7. DIOVAN [Concomitant]
     Active Substance: VALSARTAN
     Indication: HYPERTENSION
     Route: 065
     Dates: start: 2003, end: 2015
  8. DIOVAN [Concomitant]
     Active Substance: VALSARTAN
     Indication: HYPERTENSION
     Dosage: 160MG/12.5MG
     Route: 065
     Dates: start: 2015
  9. VITAMIN D3 OTC [Concomitant]
     Indication: BONE DISORDER
     Route: 065
     Dates: start: 2013
  10. METOPROLOL SUCCINATE. [Suspect]
     Active Substance: METOPROLOL SUCCINATE
     Indication: HEART RATE IRREGULAR
     Dosage: 50 MG DAILY (NON AZ PRODUCT)
     Route: 065
     Dates: start: 2015
  11. CRESTOR [Suspect]
     Active Substance: ROSUVASTATIN CALCIUM
     Indication: BLOOD CHOLESTEROL INCREASED
     Dosage: DAILY
     Route: 048
     Dates: start: 2015, end: 2015
  12. VITAMIN D3 OTC [Concomitant]
     Indication: MUSCLE DISORDER
     Route: 065
     Dates: start: 2013
  13. NEXIUM [Suspect]
     Active Substance: ESOMEPRAZOLE MAGNESIUM
     Indication: GASTROOESOPHAGEAL REFLUX DISEASE
     Route: 048
     Dates: start: 2010
  14. OMEPRAZOLE. [Suspect]
     Active Substance: OMEPRAZOLE
     Indication: GASTROOESOPHAGEAL REFLUX DISEASE
     Route: 048
     Dates: start: 2015
  15. LIPITOR [Concomitant]
     Active Substance: ATORVASTATIN CALCIUM
     Indication: BLOOD CHOLESTEROL INCREASED
     Route: 065
     Dates: start: 2010
  16. FISH OIL [Concomitant]
     Active Substance: FISH OIL
     Route: 065
  17. ASPIRIN. [Concomitant]
     Active Substance: ASPIRIN
     Indication: CEREBROVASCULAR ACCIDENT
     Route: 065
     Dates: start: 2009
  18. COQ10 [Concomitant]
     Active Substance: UBIDECARENONE
     Indication: DRUG INTOLERANCE
     Route: 065

REACTIONS (20)
  - Dyspnoea [Unknown]
  - Regurgitation [Recovered/Resolved]
  - Arthropathy [Unknown]
  - Gastrooesophageal reflux disease [Unknown]
  - Hypertension [Unknown]
  - Burning sensation [Unknown]
  - Muscle injury [Unknown]
  - Drug hypersensitivity [Unknown]
  - Chest discomfort [Unknown]
  - Stress [Unknown]
  - Heart rate irregular [Unknown]
  - Pulmonary congestion [Unknown]
  - Hypophagia [Unknown]
  - Drug dispensing error [Unknown]
  - Cerebrovascular accident [Unknown]
  - Blood cholesterol increased [Unknown]
  - Dysstasia [Unknown]
  - Anxiety [Unknown]
  - Skin exfoliation [Unknown]
  - Pneumonitis [Unknown]

NARRATIVE: CASE EVENT DATE: 2009
